FAERS Safety Report 25932601 (Version 2)
Quarter: 2025Q4

REPORT INFORMATION
  Report Type: Spontaneous
  Country: EU (occurrence: EU)
  Receive Date: 20251017
  Receipt Date: 20251110
  Transmission Date: 20260118
  Serious: Yes (Other)
  Sender: TEVA
  Company Number: EU-002147023-NVSC2025DE148699

PATIENT
  Sex: Female

DRUGS (9)
  1. FULVESTRANT [Suspect]
     Active Substance: FULVESTRANT
     Indication: Breast cancer metastatic
     Dosage: UNK
     Route: 065
     Dates: start: 202009, end: 202012
  2. DENOSUMAB [Concomitant]
     Active Substance: DENOSUMAB
     Indication: Chemotherapy
     Route: 058
     Dates: start: 202101, end: 2021
  3. CAPECITABINE [Suspect]
     Active Substance: CAPECITABINE
     Indication: Chemotherapy
     Dosage: 500 MG, BID (1ST CYCLE, 1-0-1 ON  THE 1ST CYCLE, THEN  EVERY 28  DAYS)
     Route: 065
     Dates: start: 2020, end: 2020
  4. VINORELBINE [Concomitant]
     Active Substance: VINORELBINE TARTRATE
     Indication: Chemotherapy
     Dosage: 25 MG ( MG/M? BODY SURFACE)
     Route: 065
     Dates: start: 202101, end: 202102
  5. PACLITAXEL [Suspect]
     Active Substance: PACLITAXEL
     Indication: Chemotherapy
     Dosage: 100 UNK (MG/M?  BODY SURFACE ARE)
     Route: 065
     Dates: start: 202105, end: 202109
  6. EPIRUBICIN [Suspect]
     Active Substance: EPIRUBICIN
     Indication: Chemotherapy
     Dosage: 30 UNK (MG/M? BODY SURFACE ARE)
     Route: 065
     Dates: start: 202102, end: 202105
  7. ATEZOLIZUMAB [Suspect]
     Active Substance: ATEZOLIZUMAB
     Indication: Chemotherapy
     Dosage: 840 MG, 28D
     Route: 065
     Dates: start: 202105, end: 202109
  8. ALPELISIB [Suspect]
     Active Substance: ALPELISIB
     Indication: PIK3CA-activated mutation
     Dosage: 250 MG, BID
     Route: 065
     Dates: start: 2020, end: 202012
  9. ALPELISIB [Suspect]
     Active Substance: ALPELISIB
     Indication: PIK3CA-activated mutation
     Dosage: UNK
     Route: 065
     Dates: start: 202009, end: 2020

REACTIONS (15)
  - Diabetes mellitus [Unknown]
  - Breast cancer metastatic [Unknown]
  - Pneumonitis [Unknown]
  - General physical health deterioration [Unknown]
  - Activated PI3 kinase delta syndrome [Unknown]
  - Malignant neoplasm progression [Unknown]
  - Metastases to bone [Unknown]
  - Decreased appetite [Unknown]
  - Hypoglycaemia [Unknown]
  - Pleural effusion [Unknown]
  - Fatigue [Unknown]
  - Metastases to liver [Unknown]
  - Metastases to pleura [Unknown]
  - Metastases to lymph nodes [Unknown]
  - Fracture [Unknown]

NARRATIVE: CASE EVENT DATE: 20200101
